FAERS Safety Report 25826884 (Version 1)
Quarter: 2025Q3

REPORT INFORMATION
  Report Type: Spontaneous
  Country: US (occurrence: US)
  Receive Date: 20250920
  Receipt Date: 20250920
  Transmission Date: 20251021
  Serious: No
  Sender: SANOFI AVENTIS
  Company Number: US-SANOFI-02656920

PATIENT
  Age: 70 Year
  Sex: Female

DRUGS (2)
  1. SOLIQUA 100/33 [Suspect]
     Active Substance: INSULIN GLARGINE\LIXISENATIDE
     Indication: Type 2 diabetes mellitus
     Dosage: UNK UNK, BID
     Route: 058
  2. SOLIQUA 100/33 [Suspect]
     Active Substance: INSULIN GLARGINE\LIXISENATIDE
     Dosage: 33 TO 34 UNITS, QD, MORNING
     Route: 058

REACTIONS (4)
  - Injection site pain [Unknown]
  - Needle issue [Unknown]
  - Product storage error [Unknown]
  - Intentional product misuse [Unknown]
